FAERS Safety Report 21602303 (Version 1)
Quarter: 2022Q4

REPORT INFORMATION
  Report Type: Spontaneous
  Country: US (occurrence: US)
  Receive Date: 20221116
  Receipt Date: 20221116
  Transmission Date: 20230113
  Serious: No
  Sender: FDA-Public Use
  Company Number: US-PFIZER INC-202201300493

PATIENT
  Sex: Female

DRUGS (1)
  1. PAXLOVID [Suspect]
     Active Substance: NIRMATRELVIR\RITONAVIR
     Indication: COVID-19 treatment
     Dosage: TAKES 5 TABLETS IN THE MORNING AND 5 TABLETS IN THE EVENING
     Dates: start: 202211

REACTIONS (2)
  - Dysgeusia [Unknown]
  - Overdose [Unknown]

NARRATIVE: CASE EVENT DATE: 20221101
